FAERS Safety Report 10167316 (Version 2)
Quarter: 2014Q2

REPORT INFORMATION
  Report Type: Spontaneous
  Country: CN (occurrence: CN)
  Receive Date: 20140512
  Receipt Date: 20140512
  Transmission Date: 20141212
  Serious: Yes (Other)
  Sender: FDA-Public Use
  Company Number: PHHY2013CN019774

PATIENT
  Age: 80 Year
  Sex: Male

DRUGS (6)
  1. LOTENSIN [Suspect]
     Indication: HYPERTENSION
     Dosage: 5 MG, QD
     Route: 048
     Dates: start: 20110226, end: 20130219
  2. LOTENSIN [Suspect]
     Dosage: 5 MG, BID ( (IN THE MORNING AND EVENING)
     Route: 048
     Dates: start: 20130219, end: 20130226
  3. LOTENSIN [Suspect]
     Dosage: 15 MG, BID
     Route: 048
     Dates: start: 20130226, end: 20130228
  4. LOTENSIN [Suspect]
     Dosage: 10 MG, BID
     Route: 048
     Dates: start: 20130228, end: 20130320
  5. NIFEDIPINE [Concomitant]
     Indication: HYPERTENSION
     Dosage: 1 DF, QD
     Route: 048
  6. HYDROCHLOROTHIAZIDE [Concomitant]
     Indication: HYPERTENSION
     Dosage: 0.5 DF, BID
     Route: 048

REACTIONS (2)
  - Blood pressure systolic increased [Not Recovered/Not Resolved]
  - Drug ineffective [Not Recovered/Not Resolved]
